FAERS Safety Report 15148716 (Version 2)
Quarter: 2018Q3

REPORT INFORMATION
  Report Type: Report from Study
  Country: US (occurrence: US)
  Receive Date: 20180716
  Receipt Date: 20180807
  Transmission Date: 20181010
  Serious: Yes (Hospitalization, Other)
  Sender: FDA-Public Use
  Company Number: US-GILEAD-2018-0349919

PATIENT
  Age: 83 Year
  Sex: Female

DRUGS (15)
  1. ACETAMINOPHEN. [Concomitant]
     Active Substance: ACETAMINOPHEN
  2. AMBRISENTAN [Suspect]
     Active Substance: AMBRISENTAN
     Indication: PULMONARY ARTERIAL HYPERTENSION
     Dosage: 10 MG, QD
     Route: 048
     Dates: start: 20171206
  3. ADCIRCA [Concomitant]
     Active Substance: TADALAFIL
  4. MENTHOL W/ZINC OXIDE [Concomitant]
  5. FERROUS SULFATE. [Concomitant]
     Active Substance: FERROUS SULFATE
  6. AMBRISENTAN [Suspect]
     Active Substance: AMBRISENTAN
     Indication: SCLERODERMA
  7. POTASSIUM CHLORIDE. [Concomitant]
     Active Substance: POTASSIUM CHLORIDE
  8. TADALAFIL [Concomitant]
     Active Substance: TADALAFIL
  9. PREDNISONE. [Concomitant]
     Active Substance: PREDNISONE
  10. ASPIRIN                            /00002701/ [Concomitant]
     Active Substance: ASPIRIN
  11. OMEGA 3                            /01334101/ [Concomitant]
     Active Substance: OMEGA-3 FATTY ACIDS
  12. UPTRAVI [Concomitant]
     Active Substance: SELEXIPAG
  13. OXYGEN. [Concomitant]
     Active Substance: OXYGEN
  14. BUMETANIDE. [Concomitant]
     Active Substance: BUMETANIDE
  15. PRILOSEC [Concomitant]
     Active Substance: OMEPRAZOLE MAGNESIUM

REACTIONS (3)
  - Obstructive pancreatitis [Recovered/Resolved]
  - Back pain [Unknown]
  - Cholelithiasis [Not Recovered/Not Resolved]
